FAERS Safety Report 4313397-8 (Version None)
Quarter: 2004Q1

REPORT INFORMATION
  Report Type: 
  Country: None (occurrence: None)
  Receive Date: 20040304
  Receipt Date: 20040224
  Transmission Date: 20041129
  Serious: Yes (Life-Threatening, Hospitalization)
  Sender: FDA-Public Use
  Company Number: 04-0010-PO

PATIENT
  Sex: Female
  Weight: 60 kg

DRUGS (8)
  1. MEFENAMIC ACID [Suspect]
     Dosage: 18G, ONCE, PO
     Route: 048
  2. LITHIUM CARBONATE [Suspect]
     Dosage: 4000MG, ONCE, PO
     Route: 048
  3. FLUVOXAMINE MALELATE [Suspect]
     Dosage: 800 MG ONCE
     Route: 048
  4. CLORAZEPATE DIPOTASSIUM [Suspect]
     Dosage: 250MG ONCE PO
     Route: 048
  5. CLOTIAPINE [Suspect]
     Dosage: 4000MG ONCE PO
     Route: 048
  6. FLURAZEPAM HCL [Suspect]
     Dosage: 1800MG ONCE PO
     Route: 048
  7. TRAMADOL HCL [Suspect]
     Dosage: 450MG ONCE PO
     Route: 048
  8. PROPRANOLOL HYDROCHLORIDE [Suspect]
     Dosage: 300MG ONCE PO
     Route: 048

REACTIONS (24)
  - ANAEMIA [None]
  - BOWEL SOUNDS ABNORMAL [None]
  - BRADYCARDIA [None]
  - COMA [None]
  - DIARRHOEA [None]
  - GASTRITIS HAEMORRHAGIC [None]
  - HAEMATEMESIS [None]
  - HAEMODIALYSIS [None]
  - HYPOTENSION [None]
  - HYPOXIA [None]
  - METABOLIC ACIDOSIS [None]
  - MIOSIS [None]
  - MULTIPLE DRUG OVERDOSE [None]
  - MYOCLONUS [None]
  - OEDEMA PERIPHERAL [None]
  - OLIGURIA [None]
  - PETECHIAE [None]
  - PITTING OEDEMA [None]
  - PULSE PRESSURE DECREASED [None]
  - RENAL FAILURE ACUTE [None]
  - SCAR [None]
  - SEROTONIN SYNDROME [None]
  - SUICIDE ATTEMPT [None]
  - THROMBOCYTOPENIA [None]
